FAERS Safety Report 24279246 (Version 1)
Quarter: 2024Q3

REPORT INFORMATION
  Report Type: Spontaneous
  Country: US (occurrence: US)
  Receive Date: 20240903
  Receipt Date: 20240903
  Transmission Date: 20241017
  Serious: No
  Sender: LUNDBECK
  Company Number: US-LUNDBECK-DKLU4002071

PATIENT

DRUGS (3)
  1. VYEPTI [Suspect]
     Active Substance: EPTINEZUMAB\EPTINEZUMAB-JJMR
     Indication: Migraine
     Dosage: 100 MILLIGRAM
     Route: 041
     Dates: start: 20240719
  2. BOTOX [Concomitant]
     Active Substance: ONABOTULINUMTOXINA
     Indication: Product used for unknown indication
  3. RELPAX [Concomitant]
     Active Substance: ELETRIPTAN HYDROBROMIDE
     Indication: Prophylaxis

REACTIONS (2)
  - Dizziness [Recovered/Resolved]
  - Paraesthesia [Recovered/Resolved]

NARRATIVE: CASE EVENT DATE: 20240719
